FAERS Safety Report 24079152 (Version 1)
Quarter: 2024Q3

REPORT INFORMATION
  Report Type: Spontaneous
  Country: US (occurrence: US)
  Receive Date: 20240711
  Receipt Date: 20240711
  Transmission Date: 20241016
  Serious: No
  Sender: SANOFI AVENTIS
  Company Number: US-SA-SAC20240702000236

PATIENT
  Sex: Female
  Weight: 57.15 kg

DRUGS (5)
  1. DUPIXENT [Suspect]
     Active Substance: DUPILUMAB
     Indication: Dermatitis atopic
     Dosage: 300 MG, QOW
     Route: 058
  2. VITAMIN D2 [Concomitant]
     Active Substance: ERGOCALCIFEROL
  3. VITAMINS [Concomitant]
     Active Substance: VITAMINS
  4. ETHINYL ESTRADIOL\NORGESTIMATE [Concomitant]
     Active Substance: ETHINYL ESTRADIOL\NORGESTIMATE
  5. SYNTHROID [Concomitant]
     Active Substance: LEVOTHYROXINE SODIUM

REACTIONS (3)
  - Dry skin [Unknown]
  - Pruritus [Unknown]
  - Sleep disorder [Unknown]
